FAERS Safety Report 8061616-7 (Version None)
Quarter: 2012Q1

REPORT INFORMATION
  Report Type: 
  Country: None (occurrence: None)
  Receive Date: 20120123
  Receipt Date: 20120112
  Transmission Date: 20120608
  Serious: Yes (Hospitalization)
  Sender: FDA-Public Use
  Company Number: FI-AMGEN-FINSP2011067876

PATIENT
  Age: 53 Year
  Sex: Male

DRUGS (6)
  1. EMCONCOR COMP [Concomitant]
     Indication: BLOOD PRESSURE
     Dosage: 1 TABLET DAILY
     Route: 048
     Dates: start: 20090101
  2. BETAMETHASONE DIPROPIONATE/CALCIPOTRIOL [Concomitant]
     Dosage: ONCE DAILY
     Route: 061
     Dates: start: 20040101
  3. RAPTIVA [Suspect]
     Indication: PSORIASIS
     Dosage: 1 DOSE WEEKLY
     Route: 058
     Dates: start: 20061109, end: 20070601
  4. ENBREL [Suspect]
     Indication: PSORIASIS
     Dosage: 50 MG, WEEKLY
     Route: 058
     Dates: start: 20070701
  5. ENBREL [Suspect]
     Indication: PSORIATIC ARTHROPATHY
  6. DIAPAM                             /00017001/ [Concomitant]
     Dosage: ONCE DAILY, IF NEEDED
     Route: 048
     Dates: start: 20090101

REACTIONS (3)
  - LYMPHADENOPATHY [None]
  - SQUAMOUS CELL CARCINOMA [None]
  - TONGUE NEOPLASM MALIGNANT STAGE UNSPECIFIED [None]
